FAERS Safety Report 6838979-0 (Version None)
Quarter: 2010Q3

REPORT INFORMATION
  Report Type: 
  Country: None (occurrence: None)
  Receive Date: 20100713
  Receipt Date: 20071031
  Transmission Date: 20110219
  Serious: No
  Sender: FDA-Public Use
  Company Number: US-PFIZER INC-2007048013

PATIENT
  Sex: Female
  Weight: 69.4 kg

DRUGS (7)
  1. CHANTIX [Suspect]
     Indication: SMOKING CESSATION THERAPY
     Dates: start: 20070606, end: 20070611
  2. CHANTIX [Suspect]
     Indication: CHRONIC OBSTRUCTIVE PULMONARY DISEASE
  3. ALDACTONE [Suspect]
     Indication: IRRITABILITY
     Dosage: DAILY : EVERY DAY
  4. ESTRATEST [Concomitant]
  5. LIPITOR [Concomitant]
  6. LEXAPRO [Concomitant]
  7. KLONOPIN [Concomitant]

REACTIONS (13)
  - ABDOMINAL PAIN UPPER [None]
  - DIARRHOEA [None]
  - DIZZINESS [None]
  - FLATULENCE [None]
  - MEDICATION ERROR [None]
  - NAUSEA [None]
  - NERVOUSNESS [None]
  - NOCTURIA [None]
  - OEDEMA PERIPHERAL [None]
  - TREMOR [None]
  - URINE OUTPUT INCREASED [None]
  - WEIGHT DECREASED [None]
  - WEIGHT INCREASED [None]
